FAERS Safety Report 6255639-8 (Version None)
Quarter: 2009Q3

REPORT INFORMATION
  Report Type: 
  Country: None (occurrence: None)
  Receive Date: 20090701
  Receipt Date: 20090619
  Transmission Date: 20100115
  Serious: Yes (Hospitalization, Other)
  Sender: FDA-Public Use
  Company Number: 2009-01684

PATIENT
  Age: 65 Year
  Sex: Female
  Weight: 45.8 kg

DRUGS (2)
  1. VELCADE [Suspect]
     Indication: MULTIPLE MYELOMA
     Dosage: 1.6 MG/M2, INTRAVENOUS
     Route: 042
     Dates: start: 20070424, end: 20070427
  2. MELPHALAN HYDROCHLORIDE [Suspect]
     Indication: MULTIPLE MYELOMA
     Dosage: 200 MG/M2, INTRAVENOUS
     Route: 042
     Dates: start: 20070426, end: 20070426

REACTIONS (10)
  - ABDOMINAL PAIN [None]
  - BLOOD PRESSURE DECREASED [None]
  - DEHYDRATION [None]
  - DIARRHOEA [None]
  - ELECTROLYTE IMBALANCE [None]
  - HEART RATE INCREASED [None]
  - HYPOPHAGIA [None]
  - NAUSEA [None]
  - RENAL FAILURE ACUTE [None]
  - RESPIRATORY DISTRESS [None]
